FAERS Safety Report 5389360-5 (Version None)
Quarter: 2007Q3

REPORT INFORMATION
  Report Type: 
  Country: None (occurrence: None)
  Receive Date: 20070713
  Receipt Date: 20070713
  Transmission Date: 20080115
  Serious: Yes (Other)
  Sender: FDA-Public Use
  Company Number: None

PATIENT
  Age: 91 Year
  Sex: Male
  Weight: 58.9676 kg

DRUGS (1)
  1. AMBIEN [Suspect]
     Indication: INSOMNIA
     Dosage: ONCE IN THE EVENING
     Dates: start: 20070706, end: 20070710

REACTIONS (9)
  - ABNORMAL BEHAVIOUR [None]
  - AMNESIA [None]
  - CONFUSIONAL STATE [None]
  - DEPRESSION [None]
  - DIZZINESS [None]
  - FALL [None]
  - FATIGUE [None]
  - FEELING DRUNK [None]
  - LACERATION [None]
